FAERS Safety Report 7297552-3 (Version None)
Quarter: 2011Q1

REPORT INFORMATION
  Report Type: 
  Country: None (occurrence: None)
  Receive Date: 20110216
  Receipt Date: 20101216
  Transmission Date: 20110831
  Serious: Yes (Hospitalization)
  Sender: FDA-Public Use
  Company Number: FR-PFIZER INC-HQWYE202005JAN06

PATIENT
  Age: 38 Year
  Sex: Female

DRUGS (8)
  1. ZITHROMAX [Suspect]
     Dosage: 250 MG, UNK
     Route: 048
     Dates: start: 20051102, end: 20051104
  2. SALAZOPYRINE [Suspect]
     Dosage: 500 MG, 3X/DAY
     Route: 048
     Dates: start: 20051024, end: 20051030
  3. SALAZOPYRINE [Suspect]
     Dosage: 500 MG, 1X/DAY
     Route: 048
     Dates: start: 20051010, end: 20051016
  4. SALAZOPYRINE [Suspect]
     Dosage: 1000 MG, 2X/DAY
     Route: 048
     Dates: start: 20051031, end: 20051105
  5. COLCHIMAX [Suspect]
     Dosage: 1 DF, 1X/DAY
     Route: 048
     Dates: start: 20051010, end: 20051105
  6. INIPOMP [Suspect]
     Dosage: 20 MG, 1X/DAY
     Route: 048
     Dates: start: 20051010, end: 20051108
  7. SALAZOPYRINE [Suspect]
     Dosage: 500 MG, 2X/DAY
     Route: 048
     Dates: start: 20051017, end: 20051017
  8. VOLTAREN [Suspect]
     Dosage: 150 MG, 1X/DAY
     Route: 048
     Dates: start: 20050501, end: 20051105

REACTIONS (6)
  - SKIN REACTION [None]
  - PYREXIA [None]
  - DERMATITIS BULLOUS [None]
  - RASH PAPULAR [None]
  - APHTHOUS STOMATITIS [None]
  - GENITAL RASH [None]
